FAERS Safety Report 21201457 (Version 2)
Quarter: 2022Q3

REPORT INFORMATION
  Report Type: Report from Study
  Country: CA (occurrence: CA)
  Receive Date: 20220811
  Receipt Date: 20220819
  Transmission Date: 20221026
  Serious: Yes (Hospitalization, Other)
  Sender: FDA-Public Use
  Company Number: CA-AstraZeneca-2022A264727

PATIENT
  Sex: Female

DRUGS (2)
  1. ENHERTU [Suspect]
     Active Substance: FAM-TRASTUZUMAB DERUXTECAN-NXKI
     Indication: HER2 positive breast cancer
     Dosage: 397 MG, ONCE EVERY 3 WK
     Route: 042
     Dates: start: 20220330
  2. ENHERTU [Suspect]
     Active Substance: FAM-TRASTUZUMAB DERUXTECAN-NXKI
     Dosage: 356 MG, ONCE EVERY 3 WK
     Route: 042
     Dates: start: 20220330

REACTIONS (2)
  - Haemoglobin decreased [Unknown]
  - Anaemia [Unknown]
